FAERS Safety Report 6141663-2 (Version None)
Quarter: 2009Q1

REPORT INFORMATION
  Report Type: 
  Country: None (occurrence: None)
  Receive Date: 20090331
  Receipt Date: 20090331
  Transmission Date: 20090719
  Serious: No
  Sender: FDA-Public Use
  Company Number: None

PATIENT
  Sex: Female

DRUGS (1)
  1. OXYBUTYNIN CHLORIDE [Suspect]
     Indication: BLADDER DISORDER
     Dosage: 5MG BID PO
     Route: 048
     Dates: start: 20060110, end: 20090216

REACTIONS (1)
  - VISION BLURRED [None]
